FAERS Safety Report 7941433-6 (Version None)
Quarter: 2011Q4

REPORT INFORMATION
  Report Type: 
  Country: None (occurrence: None)
  Receive Date: 20111128
  Receipt Date: 20111123
  Transmission Date: 20120403
  Serious: Yes (Death, Hospitalization)
  Sender: FDA-Public Use
  Company Number: KR-ABBOTT-11P-090-0865705-00

PATIENT
  Age: 59 Year
  Sex: Male
  Weight: 60 kg

DRUGS (5)
  1. LAMIVUDINE (EPIVIR HBV) [Concomitant]
     Indication: ANTIRETROVIRAL THERAPY
     Dosage: DAILY DOSE: 300MG
     Dates: start: 20110125
  2. KALETRA [Suspect]
     Indication: HIV INFECTION
     Route: 048
     Dates: start: 20110125
  3. AZT [Concomitant]
     Indication: ANTIRETROVIRAL THERAPY
     Dosage: DAILY DOSE: 600MG
     Dates: start: 20110125
  4. VALCYTE [Concomitant]
     Indication: PRODUCT USED FOR UNKNOWN INDICATION
     Dosage: DAILY DOSE: 900MG
     Route: 048
     Dates: start: 20110129, end: 20110224
  5. LEVOFLOXACIN [Concomitant]
     Indication: PRODUCT USED FOR UNKNOWN INDICATION
     Dosage: DAILY DOSE: 500MG
     Route: 048
     Dates: start: 20110819, end: 20110918

REACTIONS (5)
  - PNEUMONIA [None]
  - DECREASED APPETITE [None]
  - LUNG NEOPLASM MALIGNANT [None]
  - PULMONARY MASS [None]
  - SEPTIC SHOCK [None]
